FAERS Safety Report 8437096-6 (Version None)
Quarter: 2012Q2

REPORT INFORMATION
  Report Type: 
  Country: None (occurrence: None)
  Receive Date: 20120614
  Receipt Date: 20120507
  Transmission Date: 20120825
  Serious: No
  Sender: FDA-Public Use
  Company Number: US-AMGEN-USASP2012017536

PATIENT
  Age: 46 Year
  Sex: Female
  Weight: 56.236 kg

DRUGS (5)
  1. CALCIUM [Concomitant]
     Dosage: UNK UNK, QD
  2. PROLIA [Suspect]
     Indication: OSTEOPOROSIS
     Dosage: UNK, Q6MO
     Route: 058
     Dates: start: 20120301
  3. PROLIA [Suspect]
     Dosage: UNK UNK, Q6MO
     Dates: start: 20120306
  4. VITAMIN D [Concomitant]
     Dosage: UNK UNK, QD
  5. ANTIEPILEPTICS [Concomitant]
     Dosage: UNK

REACTIONS (2)
  - INCREASED TENDENCY TO BRUISE [None]
  - DIZZINESS [None]
